FAERS Safety Report 7296569-2 (Version None)
Quarter: 2011Q1

REPORT INFORMATION
  Report Type: 
  Country: None (occurrence: None)
  Receive Date: 20110216
  Receipt Date: 20110207
  Transmission Date: 20110831
  Serious: Yes (Hospitalization)
  Sender: FDA-Public Use
  Company Number: PHHO2010DE13254

PATIENT
  Sex: Male

DRUGS (5)
  1. ZOMETA [Suspect]
     Dosage: UNK
     Dates: start: 20100812
  2. PREDNISONE TAB [Concomitant]
  3. RAMIPRIL [Concomitant]
  4. DOCETAXEL [Concomitant]
  5. ZOMETA [Suspect]
     Indication: PROPHYLAXIS
     Dosage: UNK
     Route: 042
     Dates: start: 20100114, end: 20100617

REACTIONS (2)
  - DENTAL OPERATION [None]
  - OSTEONECROSIS OF JAW [None]
